FAERS Safety Report 7761623-5 (Version None)
Quarter: 2011Q3

REPORT INFORMATION
  Report Type: 
  Country: None (occurrence: None)
  Receive Date: 20110920
  Receipt Date: 20110912
  Transmission Date: 20111222
  Serious: Yes (Other)
  Sender: FDA-Public Use
  Company Number: US-ASTELLAS-2011US005799

PATIENT
  Sex: Female

DRUGS (4)
  1. PROGRAF [Suspect]
     Dosage: UNSPECIFIED DOSE INCREASE
     Route: 065
     Dates: start: 20110101
  2. METAMUCIL-2 [Suspect]
     Indication: COLONIC STENOSIS
     Dosage: UNK
     Route: 048
  3. METAMUCIL-2 [Suspect]
     Indication: SMALL INTESTINAL OBSTRUCTION
  4. PROGRAF [Suspect]
     Indication: LIVER TRANSPLANT
     Dosage: 2 MG, BID
     Route: 065
     Dates: end: 20110101

REACTIONS (6)
  - OOPHORECTOMY [None]
  - LIVER FUNCTION TEST ABNORMAL [None]
  - IMMUNOSUPPRESSANT DRUG LEVEL DECREASED [None]
  - INCORRECT STORAGE OF DRUG [None]
  - INTESTINAL OBSTRUCTION [None]
  - COLONIC STENOSIS [None]
